FAERS Safety Report 14897494 (Version 2)
Quarter: 2018Q2

REPORT INFORMATION
  Report Type: Spontaneous
  Country: US (occurrence: US)
  Receive Date: 20180515
  Receipt Date: 20180516
  Transmission Date: 20180711
  Serious: Yes (Death, Hospitalization)
  Sender: FDA-Public Use
  Company Number: US-PFIZER INC-2018193933

PATIENT
  Age: 75 Year
  Sex: Female

DRUGS (1)
  1. DILANTIN [Suspect]
     Active Substance: PHENYTOIN
     Dosage: 400 MG, DAILY

REACTIONS (2)
  - Death [Fatal]
  - Rash erythematous [Unknown]

NARRATIVE: CASE EVENT DATE: 20180206
